FAERS Safety Report 24413351 (Version 1)
Quarter: 2024Q4

REPORT INFORMATION
  Report Type: Spontaneous
  Country: CN (occurrence: CN)
  Receive Date: 20241008
  Receipt Date: 20241008
  Transmission Date: 20250115
  Serious: Yes (Hospitalization)
  Sender: VIRTUS PHARMACEUTICALS
  Company Number: CN-VIRTUS PHARMACEUTICALS, LLC-2024VTS00026

PATIENT
  Age: 63 Year
  Sex: Female

DRUGS (6)
  1. ACARBOSE [Suspect]
     Active Substance: ACARBOSE
     Indication: Type 2 diabetes mellitus
     Dosage: 100 MG, 3X/DAY
  2. DAPAGLIFLOZIN [Suspect]
     Active Substance: DAPAGLIFLOZIN
     Indication: Type 2 diabetes mellitus
     Dosage: 10 MG, 1X/DAY
  3. GLYBURIDE [Concomitant]
     Active Substance: GLYBURIDE
     Dosage: XIAOKE PILLS
  4. GLICLAZIDE [Concomitant]
     Active Substance: GLICLAZIDE
     Dosage: 80 MG, 2X/DAY
  5. NIFEDIPINE [Concomitant]
     Active Substance: NIFEDIPINE
  6. INSULIN DETEMIR [Concomitant]
     Active Substance: INSULIN DETEMIR
     Dosage: 10 IU, 1X/DAY

REACTIONS (1)
  - Diabetic ketoacidosis [Recovered/Resolved]
